FAERS Safety Report 5460981-4 (Version None)
Quarter: 2007Q3

REPORT INFORMATION
  Report Type: 
  Country: None (occurrence: None)
  Receive Date: 20070822
  Receipt Date: 20070220
  Transmission Date: 20080115
  Serious: Yes (Other)
  Sender: FDA-Public Use
  Company Number: 2007013949

PATIENT
  Age: 44 Year
  Sex: Female
  Weight: 74.8 kg

DRUGS (3)
  1. NORVASC [Suspect]
     Indication: OESOPHAGEAL DISORDER
     Dosage: 2.5 MG (2.5 MG, 1IN 24 HR)
     Dates: start: 20070217
  2. ALBUTEROL [Concomitant]
  3. NASONEX [Concomitant]

REACTIONS (2)
  - PALPITATIONS [None]
  - TACHYCARDIA [None]
